FAERS Safety Report 5904542-9 (Version None)
Quarter: 2008Q3

REPORT INFORMATION
  Report Type: 
  Country: None (occurrence: None)
  Receive Date: 20080930
  Receipt Date: 20080930
  Transmission Date: 20090109
  Serious: Yes (Hospitalization)
  Sender: FDA-Public Use
  Company Number: None

PATIENT
  Age: 81 Year
  Sex: Male

DRUGS (1)
  1. WARFARIN SODIUM [Suspect]
     Indication: DEEP VEIN THROMBOSIS
     Dosage: 3 MG EVERYDAY PO
     Route: 048
     Dates: end: 20080801

REACTIONS (5)
  - ABDOMINAL PAIN [None]
  - HAEMATURIA [None]
  - HAEMORRHAGE [None]
  - INTRA-ABDOMINAL HAEMATOMA [None]
  - MUSCLE HAEMORRHAGE [None]
